FAERS Safety Report 23711909 (Version 1)
Quarter: 2024Q2

REPORT INFORMATION
  Report Type: Spontaneous
  Country: FR (occurrence: FR)
  Receive Date: 20240405
  Receipt Date: 20240405
  Transmission Date: 20240716
  Serious: Yes (Hospitalization)
  Sender: FDA-Public Use
  Company Number: None

PATIENT
  Age: 63 Year
  Sex: Male
  Weight: 82 kg

DRUGS (7)
  1. JARDIANCE [Suspect]
     Active Substance: EMPAGLIFLOZIN
     Indication: Type 2 diabetes mellitus
     Route: 048
     Dates: end: 20240316
  2. OZEMPIC 1 mg, solution for injection in pre-filled pen [Concomitant]
     Indication: Type 2 diabetes mellitus
     Route: 058
     Dates: end: 20240316
  3. LIPTRUZET 10 mg/80 mg, film coated tablet [Concomitant]
     Indication: Product used for unknown indication
     Dosage: 10 MG/80 MG
  4. KARDEGIC 75 mg, poudre for oral solution in sachet-dose [Concomitant]
     Indication: Product used for unknown indication
  5. BISOPROLOL FUMARATE [Concomitant]
     Active Substance: BISOPROLOL FUMARATE
     Indication: Product used for unknown indication
  6. ALDACTONE 25 mg, scored film-coated tablet [Concomitant]
     Indication: Product used for unknown indication
  7. ENTRESTO 97 mg/103 mg, film coated tablet [Concomitant]
     Indication: Product used for unknown indication
     Dosage: 97 MG/103 MG,

REACTIONS (2)
  - Polyuria [Recovered/Resolved]
  - Glycosuria [Recovered/Resolved]

NARRATIVE: CASE EVENT DATE: 20240318
